FAERS Safety Report 4568324-5 (Version None)
Quarter: 2005Q1

REPORT INFORMATION
  Report Type: 
  Country: None (occurrence: None)
  Receive Date: 20050131
  Receipt Date: 20050118
  Transmission Date: 20050727
  Serious: Yes (Hospitalization, Other)
  Sender: FDA-Public Use
  Company Number: 2005014992

PATIENT
  Age: 27 Year
  Sex: Female

DRUGS (5)
  1. CELEBREX [Suspect]
     Indication: MYALGIA
     Dosage: (200 MG), ORAL
     Route: 048
  2. INSULIN [Concomitant]
  3. RAMIPRIL [Concomitant]
  4. BLOPRESS PLUS (CANDESARTAN CILEXETIL HYDROCHLOROTHIAZIDE) [Concomitant]
  5. SIMVASTATIN [Concomitant]

REACTIONS (3)
  - BLOOD PRESSURE INCREASED [None]
  - GENERALISED OEDEMA [None]
  - RENAL IMPAIRMENT [None]
